FAERS Safety Report 23189476 (Version 2)
Quarter: 2023Q4

REPORT INFORMATION
  Report Type: Other
  Country: CA (occurrence: None)
  Receive Date: 20231116
  Receipt Date: 20231116
  Transmission Date: 20240110
  Serious: No
  Sender: FDA-Public Use
  Company Number: CA-ROCHE-3196328

PATIENT
  Sex: Female

DRUGS (9)
  1. OCREVUS [Suspect]
     Active Substance: OCRELIZUMAB
     Indication: Relapsing-remitting multiple sclerosis
     Dosage: 300 MG AT DAY 0 AND 14, THEN 600 MG EVERY 6 MONTH
     Route: 042
     Dates: start: 20221007
  2. BENADRYL [Concomitant]
     Active Substance: DIPHENHYDRAMINE HYDROCHLORIDE
     Route: 042
  3. SOLU-MEDROL [Concomitant]
     Active Substance: METHYLPREDNISOLONE SODIUM SUCCINATE
     Route: 042
  4. TYLENOL [Concomitant]
     Active Substance: ACETAMINOPHEN
  5. TOPIRAMATE [Concomitant]
     Active Substance: TOPIRAMATE
  6. METRONIDAZOLE [Concomitant]
     Active Substance: METRONIDAZOLE
  7. NYSTATIN [Concomitant]
     Active Substance: NYSTATIN
  8. PRAMIPEXOLE [Concomitant]
     Active Substance: PRAMIPEXOLE
  9. ACETAMINOPHEN [Concomitant]
     Active Substance: ACETAMINOPHEN

REACTIONS (15)
  - Infusion related reaction [Recovered/Resolved]
  - Chest pain [Not Recovered/Not Resolved]
  - Irritability [Unknown]
  - Headache [Recovered/Resolved]
  - Fatigue [Not Recovered/Not Resolved]
  - Neuralgia [Recovered/Resolved]
  - Stress [Unknown]
  - Infusion related reaction [Unknown]
  - Panic disorder [Unknown]
  - Optic neuritis [Unknown]
  - Gait disturbance [Not Recovered/Not Resolved]
  - Arthralgia [Not Recovered/Not Resolved]
  - Bacterial vaginosis [Recovered/Resolved]
  - Oral candidiasis [Recovered/Resolved]
  - Cystitis [Recovered/Resolved]
